FAERS Safety Report 5972501-6 (Version None)
Quarter: 2008Q4

REPORT INFORMATION
  Report Type: 
  Country: None (occurrence: None)
  Receive Date: 20081201
  Receipt Date: 20081119
  Transmission Date: 20090506
  Serious: Yes (Other)
  Sender: FDA-Public Use
  Company Number: B0360226A

PATIENT
  Age: 35 Year
  Sex: Female

DRUGS (6)
  1. PAROXETINE HCL [Suspect]
     Route: 065
     Dates: start: 19981101
  2. AMITRIPTYLINE HCL [Concomitant]
     Dates: start: 19890224
  3. DIAZEPAM [Concomitant]
     Dates: start: 19980401
  4. PROTHIADEN [Concomitant]
     Dates: start: 19991207
  5. CIPRALEX [Concomitant]
     Dates: start: 20050307
  6. EFFEXOR [Concomitant]
     Dates: start: 20050401

REACTIONS (18)
  - ANHEDONIA [None]
  - ANXIETY [None]
  - CONDITION AGGRAVATED [None]
  - DRUG EXPOSURE DURING PREGNANCY [None]
  - DRUG WITHDRAWAL SYNDROME [None]
  - FEAR [None]
  - HEADACHE [None]
  - HYPERHIDROSIS [None]
  - HYPOAESTHESIA FACIAL [None]
  - LETHARGY [None]
  - MOOD SWINGS [None]
  - MYALGIA [None]
  - NERVOUSNESS [None]
  - PANIC ATTACK [None]
  - PARAESTHESIA [None]
  - SOCIAL AVOIDANT BEHAVIOUR [None]
  - SUICIDAL IDEATION [None]
  - TEARFULNESS [None]
